FAERS Safety Report 18096182 (Version 4)
Quarter: 2020Q3

REPORT INFORMATION
  Report Type: Spontaneous
  Country: DE (occurrence: DE)
  Receive Date: 20200731
  Receipt Date: 20200914
  Transmission Date: 20201103
  Serious: Yes (Hospitalization)
  Sender: FDA-Public Use
  Company Number: DE-ROCHE-2650822

PATIENT
  Sex: Male
  Weight: 64 kg

DRUGS (4)
  1. HISTAMINE [Concomitant]
     Active Substance: HISTAMINE
     Indication: PROPHYLAXIS
     Route: 042
  2. OCREVUS [Suspect]
     Active Substance: OCRELIZUMAB
     Route: 042
     Dates: start: 20200311
  3. CORTISONE [Concomitant]
     Active Substance: CORTISONE
     Indication: PROPHYLAXIS
     Route: 042
  4. OCREVUS [Suspect]
     Active Substance: OCRELIZUMAB
     Indication: MULTIPLE SCLEROSIS
     Route: 042
     Dates: start: 201809

REACTIONS (2)
  - Thrombosis [Unknown]
  - Deep vein thrombosis [Unknown]

NARRATIVE: CASE EVENT DATE: 2019
